FAERS Safety Report 5177151-X (Version None)
Quarter: 2006Q4

REPORT INFORMATION
  Report Type: 
  Country: None (occurrence: None)
  Receive Date: 20061218
  Receipt Date: 20061206
  Transmission Date: 20070319
  Serious: Yes (Hospitalization)
  Sender: FDA-Public Use
  Company Number: JP-MERCK-0612USA01384

PATIENT
  Age: 82 Year
  Sex: Female

DRUGS (14)
  1. FOSAMAX [Suspect]
     Indication: OSTEOPOROSIS
     Route: 048
     Dates: start: 20061001, end: 20061101
  2. ARTIST [Concomitant]
     Route: 048
  3. LASIX [Concomitant]
     Route: 048
  4. ALLOPURINOL [Concomitant]
     Route: 048
  5. GASTER D [Concomitant]
     Route: 048
  6. PURSENNID [Concomitant]
     Route: 048
  7. SOLANAX [Concomitant]
     Route: 048
  8. EUGLUCON [Concomitant]
     Route: 048
  9.  [Concomitant]
     Route: 048
  10.  [Concomitant]
     Route: 048
  11. FRANDOL [Concomitant]
     Route: 065
  12. VOLTAREN [Concomitant]
     Route: 048
  13. GASTROM [Concomitant]
     Route: 048
  14.  [Concomitant]
     Route: 065

REACTIONS (1)
  - INTESTINAL OBSTRUCTION [None]
